FAERS Safety Report 7387849-0 (Version None)
Quarter: 2011Q1

REPORT INFORMATION
  Report Type: 
  Country: None (occurrence: None)
  Receive Date: 20110331
  Receipt Date: 20110322
  Transmission Date: 20110831
  Serious: Yes (Hospitalization, Disabling, Other)
  Sender: FDA-Public Use
  Company Number: US-MERCK-0705USA00823

PATIENT
  Age: 67 Year
  Sex: Female
  Weight: 57 kg

DRUGS (16)
  1. COUMADIN [Concomitant]
     Indication: ATRIAL FIBRILLATION
     Route: 048
     Dates: start: 19980101
  2. RAMIPRIL [Concomitant]
     Indication: HEART RATE ABNORMAL
     Route: 065
     Dates: start: 19980101
  3. VITAMIN E [Concomitant]
     Route: 065
     Dates: start: 19900101
  4. LISINOPRIL [Concomitant]
     Route: 048
  5. CALCIUM (UNSPECIFIED) AND VITAMIN D (UNSPECIFIED) [Concomitant]
     Route: 048
  6. VITA C [Concomitant]
     Route: 065
  7. AMITRIPTYLINE HYDROCHLORIDE [Concomitant]
     Route: 065
  8. MOTRIN [Concomitant]
     Route: 065
  9. FOSAMAX [Suspect]
     Indication: OSTEOPOROSIS
     Route: 048
     Dates: start: 20010223, end: 20050801
  10. PERCOCET [Concomitant]
     Route: 065
  11. MIACALCIN [Concomitant]
     Route: 065
  12. VITAMINS (UNSPECIFIED) [Concomitant]
     Route: 065
     Dates: start: 19900101
  13. TAMOXIFEN CITRATE [Concomitant]
     Indication: BREAST CANCER
     Route: 048
     Dates: start: 20000101, end: 20050101
  14. ATENOLOL [Concomitant]
     Indication: HEART RATE ABNORMAL
     Route: 048
     Dates: start: 19980101
  15. CALCIUM (UNSPECIFIED) AND VITAMIN D (UNSPECIFIED) [Concomitant]
     Route: 065
     Dates: start: 19900101
  16. FOSAMAX [Suspect]
     Indication: FRACTURED SACRUM
     Route: 048
     Dates: start: 20010223, end: 20050801

REACTIONS (49)
  - BONE DISORDER [None]
  - FEMUR FRACTURE [None]
  - LOW TURNOVER OSTEOPATHY [None]
  - OSTEOARTHRITIS [None]
  - INCISION SITE HAEMORRHAGE [None]
  - MUSCULAR WEAKNESS [None]
  - URINARY INCONTINENCE [None]
  - TRIGONITIS [None]
  - PAIN IN EXTREMITY [None]
  - OSTEOPENIA [None]
  - CYSTOCELE [None]
  - COMPRESSION FRACTURE [None]
  - OSTEOMYELITIS [None]
  - ANXIETY [None]
  - TOOTH EXTRACTION [None]
  - FEMORAL NECK FRACTURE [None]
  - MENTAL STATUS CHANGES [None]
  - DEPRESSION [None]
  - VITAMIN D DEFICIENCY [None]
  - VAGINAL HAEMORRHAGE [None]
  - GINGIVAL DISORDER [None]
  - DIARRHOEA [None]
  - OSTEONECROSIS OF JAW [None]
  - ASTHENIA [None]
  - STRESS FRACTURE [None]
  - SPINAL DISORDER [None]
  - NEUROPATHY PERIPHERAL [None]
  - DIZZINESS [None]
  - PSYCHOTIC DISORDER [None]
  - HAEMOGLOBIN DECREASED [None]
  - URETHRAL PROLAPSE [None]
  - FALL [None]
  - HAEMATOCRIT DECREASED [None]
  - INTERNATIONAL NORMALISED RATIO INCREASED [None]
  - VOMITING [None]
  - HAEMATURIA [None]
  - ARTHROPATHY [None]
  - HYPOTENSION [None]
  - SINUSITIS [None]
  - PYREXIA [None]
  - BLOOD CREATININE INCREASED [None]
  - DYSAESTHESIA [None]
  - NAUSEA [None]
  - INFLAMMATION [None]
  - HYPERLIPIDAEMIA [None]
  - BALANCE DISORDER [None]
  - LETHARGY [None]
  - OEDEMA PERIPHERAL [None]
  - LUMBAR SPINAL STENOSIS [None]
